FAERS Safety Report 6070090-1 (Version None)
Quarter: 2009Q1

REPORT INFORMATION
  Report Type: 
  Country: None (occurrence: None)
  Receive Date: 20090209
  Receipt Date: 20090205
  Transmission Date: 20090719
  Serious: Yes (Other)
  Sender: FDA-Public Use
  Company Number: JP-WYE-H05369108

PATIENT
  Age: 84 Year
  Sex: Female

DRUGS (2)
  1. HYPEN [Suspect]
     Indication: OSTEOARTHRITIS
     Dosage: NOT SPECIFIED
     Route: 048
     Dates: start: 20060101, end: 20080725
  2. CAMOSTAT MESILATE [Suspect]
     Dosage: NOT SPECIFIED
     Route: 048

REACTIONS (1)
  - PLATELET COUNT DECREASED [None]
